FAERS Safety Report 25927373 (Version 1)
Quarter: 2025Q4

REPORT INFORMATION
  Report Type: Spontaneous
  Country: GB (occurrence: GB)
  Receive Date: 20251015
  Receipt Date: 20251015
  Transmission Date: 20260117
  Serious: Yes (Other)
  Sender: TEVA
  Company Number: None

PATIENT
  Sex: Female
  Weight: 98 kg

DRUGS (1)
  1. DOXYCYCLINE [Suspect]
     Active Substance: DOXYCYCLINE
     Indication: Lower respiratory tract infection
     Dosage: 2 X 100 DOSE ON DAY ONE (13/10/2025) THEN I WAS MEANT TO GO DOWN TO ONE 100 CAPSULE FROM TOMORROW
     Route: 065
     Dates: start: 20251013, end: 20251013

REACTIONS (1)
  - Vomiting projectile [Recovered/Resolved]

NARRATIVE: CASE EVENT DATE: 20251013
